FAERS Safety Report 25203197 (Version 1)
Quarter: 2025Q2

REPORT INFORMATION
  Report Type: Spontaneous
  Country: US (occurrence: US)
  Receive Date: 20250416
  Receipt Date: 20250416
  Transmission Date: 20250717
  Serious: Yes (Other)
  Sender: INSUD PHARMA
  Company Number: US-EXELTIS PHARMACEUTICAL HOLDING, S.L.-2504US02823

PATIENT

DRUGS (1)
  1. SLYND [Suspect]
     Active Substance: DROSPIRENONE
     Indication: Product used for unknown indication
     Route: 048
     Dates: start: 202503

REACTIONS (2)
  - Uterine haemorrhage [Not Recovered/Not Resolved]
  - Abnormal menstrual clots [Not Recovered/Not Resolved]

NARRATIVE: CASE EVENT DATE: 20250409
